FAERS Safety Report 14430853 (Version 8)
Quarter: 2019Q1

REPORT INFORMATION
  Report Type: Spontaneous
  Country: CA (occurrence: CA)
  Receive Date: 20180124
  Receipt Date: 20190305
  Transmission Date: 20190417
  Serious: Yes (Other)
  Sender: FDA-Public Use
  Company Number: CA-ORION CORPORATION ORION PHARMA-TREX2017-1117

PATIENT
  Age: 57 Year
  Sex: Male
  Weight: 75 kg

DRUGS (13)
  1. INFLECTRA [Suspect]
     Active Substance: INFLIXIMAB-DYYB
     Dosage: CYCLIC
     Route: 042
     Dates: start: 20171121
  2. HYDROMORPHONE [Concomitant]
     Active Substance: HYDROMORPHONE
     Route: 065
  3. INFLECTRA [Suspect]
     Active Substance: INFLIXIMAB-DYYB
     Dosage: CYCLIC
     Route: 042
     Dates: start: 20180116
  4. INFLECTRA [Suspect]
     Active Substance: INFLIXIMAB-DYYB
     Dosage: CYCLIC
     Route: 042
     Dates: start: 20180827
  5. TYLENOL [Concomitant]
     Active Substance: ACETAMINOPHEN
     Route: 065
  6. INFLECTRA [Suspect]
     Active Substance: INFLIXIMAB-DYYB
     Dosage: CYCLIC
     Route: 042
     Dates: start: 20170922
  7. INFLECTRA [Suspect]
     Active Substance: INFLIXIMAB-DYYB
     Dosage: CYCLIC
     Route: 042
     Dates: start: 20190223
  8. INFLECTRA [Suspect]
     Active Substance: INFLIXIMAB-DYYB
     Dosage: CYCLIC
     Route: 042
     Dates: start: 20180312
  9. INFLECTRA [Suspect]
     Active Substance: INFLIXIMAB-DYYB
     Dosage: CYCLIC
     Route: 042
     Dates: start: 20181023
  10. TYLENOL WITH CODEINE [Concomitant]
     Active Substance: ACETAMINOPHEN\CODEINE PHOSPHATE
     Route: 065
  11. HYDROCORTISONE. [Concomitant]
     Active Substance: HYDROCORTISONE
     Indication: PREMEDICATION
     Route: 042
  12. INFLECTRA [Suspect]
     Active Substance: INFLIXIMAB-DYYB
     Indication: RHEUMATOID ARTHRITIS
     Dosage: EVERY 0, 2, 6 WEEKS, THEN EVERY 8 WEEKS, 3 MG/KG
     Route: 042
     Dates: start: 20160520, end: 20170726
  13. METHOTREXATE (TRADE NAME UNKNOWN) [Suspect]
     Active Substance: METHOTREXATE
     Indication: RHEUMATOID ARTHRITIS
     Route: 048

REACTIONS (11)
  - Oropharyngeal pain [Recovered/Resolved]
  - Somnolence [Unknown]
  - Hypertension [Unknown]
  - Fatigue [Unknown]
  - Blood pressure fluctuation [Unknown]
  - Drug effect incomplete [Unknown]
  - Pyrexia [Recovered/Resolved]
  - Nasopharyngitis [Recovered/Resolved]
  - Pulse abnormal [Unknown]
  - Respiratory rate increased [Recovered/Resolved]
  - Rheumatoid arthritis [Recovered/Resolved]

NARRATIVE: CASE EVENT DATE: 2017
